FAERS Safety Report 11829176 (Version 1)
Quarter: 2015Q4

REPORT INFORMATION
  Report Type: Spontaneous
  Country: US (occurrence: US)
  Receive Date: 20151211
  Receipt Date: 20151211
  Transmission Date: 20160305
  Serious: Yes (Hospitalization, Disabling)
  Sender: FDA-Public Use
  Company Number: US-PFIZER INC-2015433744

PATIENT
  Age: 35 Year
  Sex: Male

DRUGS (1)
  1. VIAGRA [Suspect]
     Active Substance: SILDENAFIL CITRATE
     Indication: ELDERLY
     Dosage: 100MG ONE TABLET 30 MINUTES BEFORE BUSINESS ON AN EMPTY
     Route: 048
     Dates: start: 1998

REACTIONS (4)
  - Eye disorder [Not Recovered/Not Resolved]
  - Joint injury [Unknown]
  - Blood pressure abnormal [Recovering/Resolving]
  - Road traffic accident [Unknown]

NARRATIVE: CASE EVENT DATE: 20000807
